FAERS Safety Report 15936544 (Version 2)
Quarter: 2019Q3

REPORT INFORMATION
  Report Type: Spontaneous
  Country: IT (occurrence: IT)
  Receive Date: 20190208
  Receipt Date: 20190729
  Transmission Date: 20191004
  Serious: Yes (Other)
  Sender: FDA-Public Use
  Company Number: IT-AUROBINDO-AUR-APL-2019-004858

PATIENT

DRUGS (2)
  1. CETIRIZINE [Suspect]
     Active Substance: CETIRIZINE HYDROCHLORIDE
     Dosage: UPDOSING (4 TIMES THE STANDARD DOSE)
     Route: 065
  2. CETIRIZINE [Suspect]
     Active Substance: CETIRIZINE HYDROCHLORIDE
     Indication: CHRONIC SPONTANEOUS URTICARIA
     Dosage: 2.5 MILLIGRAM, TWO TIMES A DAY
     Route: 065

REACTIONS (3)
  - Sleep terror [Recovered/Resolved]
  - Diplopia [Recovered/Resolved]
  - Toxicity to various agents [Unknown]
